FAERS Safety Report 16814179 (Version 1)
Quarter: 2019Q3

REPORT INFORMATION
  Report Type: Spontaneous
  Country: US (occurrence: US)
  Receive Date: 20190917
  Receipt Date: 20190917
  Transmission Date: 20191005
  Serious: No
  Sender: FDA-Public Use
  Company Number: US-ALLERGAN-1854470US

PATIENT
  Age: 74 Year
  Sex: Female
  Weight: 71.67 kg

DRUGS (10)
  1. FUROSEMIDE. [Concomitant]
     Active Substance: FUROSEMIDE
     Indication: DYSURIA
     Dosage: 40 MG, QD
     Route: 048
  2. SUCRALFATE - BP [Suspect]
     Active Substance: SUCRALFATE
     Indication: OROPHARYNGEAL DISCOMFORT
     Dosage: ACTUAL:1 GRAM TABLET TAKEN BY MOUTH ONCE
     Route: 048
     Dates: start: 20181117, end: 20181117
  3. LISINOPRIL. [Concomitant]
     Active Substance: LISINOPRIL
     Indication: CARDIAC DISORDER
  4. LEVOTHYROXINE. [Concomitant]
     Active Substance: LEVOTHYROXINE
     Indication: HYPOTHYROIDISM
     Dosage: ACTUAL:88MCG TABLET TAKEN BY MOUTH ONCE OR TWICE DAILY
     Route: 048
  5. LISINOPRIL. [Concomitant]
     Active Substance: LISINOPRIL
     Indication: HYPERTENSION
     Dosage: 20 MG, QD
     Route: 048
  6. OMEPRAZOLE. [Concomitant]
     Active Substance: OMEPRAZOLE
     Indication: GASTROOESOPHAGEAL REFLUX DISEASE
     Dosage: 40 MG, QD
     Route: 048
  7. ONDANSETRON [Concomitant]
     Active Substance: ONDANSETRON
     Indication: NAUSEA
     Dosage: ACTUAL:8MG ODT-1 TABLET DISINTEGRATED
     Route: 048
  8. POTASSIUM [Concomitant]
     Active Substance: POTASSIUM
     Dosage: 10 MG, QD
     Route: 048
  9. XIFAXAN [Concomitant]
     Active Substance: RIFAXIMIN
     Indication: PRODUCT USED FOR UNKNOWN INDICATION
     Dosage: 550 MG, BID
     Route: 048
  10. LACTULOSE. [Concomitant]
     Active Substance: LACTULOSE
     Indication: DIARRHOEA
     Dosage: ACTUAL: 10-15MG LIQUID TAKEN BY MOUTH 2-3 TIMES DAILY AS NEEDED

REACTIONS (7)
  - Insomnia [Unknown]
  - Drug hypersensitivity [Recovering/Resolving]
  - Disorientation [Recovered/Resolved]
  - Hypoaesthesia [Unknown]
  - Feeling abnormal [Not Recovered/Not Resolved]
  - Off label use [Unknown]
  - Retching [Unknown]

NARRATIVE: CASE EVENT DATE: 20181117
